FAERS Safety Report 12473696 (Version 1)
Quarter: 2016Q2

REPORT INFORMATION
  Report Type: Spontaneous
  Country: US (occurrence: US)
  Receive Date: 20160616
  Receipt Date: 20160616
  Transmission Date: 20160815
  Serious: No
  Sender: FDA-Public Use
  Company Number: US-TARO-2015TAR00567

PATIENT
  Age: 30 Month
  Sex: Male

DRUGS (1)
  1. CETIRIZINE HCL [Suspect]
     Active Substance: CETIRIZINE HYDROCHLORIDE
     Indication: ERYTHEMA MULTIFORME
     Dosage: 0.5 TSP, ONCE
     Route: 048
     Dates: start: 20150610

REACTIONS (3)
  - Rash erythematous [Not Recovered/Not Resolved]
  - Off label use [Unknown]
  - Erythema multiforme [Not Recovered/Not Resolved]

NARRATIVE: CASE EVENT DATE: 20150610
